FAERS Safety Report 4444866-8 (Version None)
Quarter: 2004Q3

REPORT INFORMATION
  Report Type: 
  Country: None (occurrence: None)
  Receive Date: 20040909
  Receipt Date: 20040624
  Transmission Date: 20050211
  Serious: Yes (Hospitalization)
  Sender: FDA-Public Use
  Company Number: US-GLAXOSMITHKLINE-A0515893A

PATIENT
  Age: 52 Year
  Sex: Male

DRUGS (5)
  1. AUGMENTIN '125' [Suspect]
     Indication: STAPHYLOCOCCAL INFECTION
     Dosage: 1TAB TWICE PER DAY
     Route: 048
     Dates: start: 20040201, end: 20040201
  2. OXYCONTIN [Concomitant]
  3. ROXICODONE [Concomitant]
  4. ELAVIL [Concomitant]
  5. XANAX [Concomitant]

REACTIONS (3)
  - DELUSION [None]
  - DISORIENTATION [None]
  - IMPAIRED DRIVING ABILITY [None]
